FAERS Safety Report 9250636 (Version 1)
Quarter: 2013Q1

REPORT INFORMATION
  Report Type: Spontaneous
  Country: US (occurrence: None)
  Receive Date: 20130305
  Receipt Date: 20130305
  Transmission Date: 20140127
  Serious: Yes (Other)
  Sender: FDA-Public Use
  Company Number: 163-21880-12040374

PATIENT
  Age: 74 Year
  Sex: Female

DRUGS (6)
  1. REVLIMID [Suspect]
     Indication: PLASMA CELL MYELOMA
     Dosage: 10 MG, DAILY X 21/28 DAYS, PO
     Route: 048
     Dates: start: 20120119
  2. GABAPENTIN (GABAPENTIN) [Concomitant]
  3. VITAMIN D (ERGOCALCIFEROL) [Concomitant]
  4. ASPIRIN (ACETYLSALICYLIC ACID) [Concomitant]
  5. SENOKOT (SENNA FRUIT) [Concomitant]
  6. OMEGA 3 FISH OIL (FISH OIL) [Concomitant]

REACTIONS (6)
  - Haemoglobin decreased [None]
  - Oedema peripheral [None]
  - Asthenia [None]
  - Pruritus [None]
  - Decreased appetite [None]
  - Dizziness [None]
